FAERS Safety Report 19005552 (Version 1)
Quarter: 2021Q1

REPORT INFORMATION
  Report Type: Report from Study
  Country: PK (occurrence: PK)
  Receive Date: 20210313
  Receipt Date: 20210313
  Transmission Date: 20210420
  Serious: Yes (Other)
  Sender: FDA-Public Use
  Company Number: NVSC2021PK054367

PATIENT
  Age: 23 Year
  Sex: Male

DRUGS (3)
  1. CERTICAN [Suspect]
     Active Substance: EVEROLIMUS
     Dosage: 3 DF, BID
     Route: 048
     Dates: start: 20210226
  2. CERTICAN [Suspect]
     Active Substance: EVEROLIMUS
     Indication: RENAL TRANSPLANT
     Dosage: 3 DF, BID
     Route: 048
     Dates: start: 20181218, end: 20210108
  3. CERTICAN [Suspect]
     Active Substance: EVEROLIMUS
     Dosage: 3 TABS IN THE AM AND 2 TABS IN THE PM, BID
     Route: 048
     Dates: start: 20210108, end: 20210225

REACTIONS (1)
  - Drug level decreased [Not Recovered/Not Resolved]

NARRATIVE: CASE EVENT DATE: 20210125
